FAERS Safety Report 6451950-6 (Version None)
Quarter: 2009Q4

REPORT INFORMATION
  Report Type: 
  Country: None (occurrence: None)
  Receive Date: 20091123
  Receipt Date: 20091109
  Transmission Date: 20100525
  Serious: Yes (Other)
  Sender: FDA-Public Use
  Company Number: CH-GENENTECH-294121

PATIENT
  Sex: Male

DRUGS (1)
  1. AVASTIN [Suspect]
     Indication: OLIGODENDROGLIOMA
     Dosage: UNK
     Route: 065
     Dates: start: 20061127, end: 20070206

REACTIONS (2)
  - CONFUSIONAL STATE [None]
  - DISEASE PROGRESSION [None]
